FAERS Safety Report 6344150-1 (Version None)
Quarter: 2009Q3

REPORT INFORMATION
  Report Type: 
  Country: None (occurrence: None)
  Receive Date: 20090908
  Receipt Date: 20090827
  Transmission Date: 20100115
  Serious: Yes (Hospitalization)
  Sender: FDA-Public Use
  Company Number: US-AVENTIS-200917702US

PATIENT
  Sex: Female

DRUGS (4)
  1. LANTUS [Suspect]
     Indication: TYPE 2 DIABETES MELLITUS
     Route: 058
  2. OPTICLIK (INSULIN INJECTION PEN) [Suspect]
     Indication: TYPE 2 DIABETES MELLITUS
  3. NOVOLOG [Concomitant]
     Dosage: DOSE: UNK
  4. SOME OTHER MEDICATIONS (NOS) [Concomitant]
     Dosage: DOSE: UNK

REACTIONS (2)
  - ABSCESS [None]
  - BLOOD GLUCOSE INCREASED [None]
